FAERS Safety Report 6250109-5 (Version None)
Quarter: 2009Q2

REPORT INFORMATION
  Report Type: 
  Country: None (occurrence: None)
  Receive Date: 20090626
  Receipt Date: 20090611
  Transmission Date: 20091009
  Serious: Yes (Hospitalization)
  Sender: FDA-Public Use
  Company Number: ABX40-09-0281

PATIENT
  Age: 68 Year
  Sex: Female

DRUGS (12)
  1. ABRAXANE [Suspect]
     Indication: BREAST CANCER
     Dosage: INTRAVENOUS
     Route: 042
  2. CYCLOPHOSPHAMIDE [Suspect]
     Indication: BREAST CANCER
  3. ADRIAMYCIN PFS [Suspect]
     Indication: BREAST CANCER
  4. BEVACIZUMAB (BEVACIZUMAB) [Suspect]
     Indication: BREAST CANCER
     Dates: end: 20061120
  5. ACETAMINOPHEN [Concomitant]
  6. GRANISETRON  HCL [Concomitant]
  7. ALENDRONATE SODIUM TABLETS (ALENDRONATE SODIUM) [Concomitant]
  8. CALCIUM SUPPLEMENTS (CALCIUM) [Concomitant]
  9. ESOMEPRAZOLE MAGNESIUM (ESOMEPRAZOLE MAGNESIUM) [Concomitant]
  10. ESZOPICLONE (ESZOPICLONE) [Concomitant]
  11. MULTIVITAMIN [Concomitant]
  12. SERTRALINE [Concomitant]

REACTIONS (3)
  - SEROMA [None]
  - WOUND COMPLICATION [None]
  - WOUND DEHISCENCE [None]
